FAERS Safety Report 14631307 (Version 2)
Quarter: 2018Q1

REPORT INFORMATION
  Report Type: Spontaneous
  Country: GB (occurrence: GB)
  Receive Date: 20180313
  Receipt Date: 20180313
  Transmission Date: 20180509
  Serious: Yes (Hospitalization, Other)
  Sender: FDA-Public Use
  Company Number: PHHY2018GB039597

PATIENT
  Age: 73 Year
  Sex: Male

DRUGS (1)
  1. CICLOSPORIN [Suspect]
     Active Substance: CYCLOSPORINE
     Indication: PSORIASIS
     Dosage: 150 MG, UNK (100 MG AMNE AND 50 M G NOCTE)
     Route: 065
     Dates: start: 20161205, end: 20170317

REACTIONS (6)
  - Cerebral infarction [Recovered/Resolved]
  - Asthenia [Recovered/Resolved]
  - Gastric disorder [Unknown]
  - Anxiety [Unknown]
  - Fall [Recovered/Resolved]
  - Renal impairment [Unknown]

NARRATIVE: CASE EVENT DATE: 20170423
